FAERS Safety Report 6100071-0 (Version None)
Quarter: 2009Q1

REPORT INFORMATION
  Report Type: 
  Country: None (occurrence: None)
  Receive Date: 20090303
  Receipt Date: 20090227
  Transmission Date: 20090719
  Serious: Yes (Hospitalization)
  Sender: FDA-Public Use
  Company Number: B0562046A

PATIENT
  Age: 11 Year
  Sex: Male

DRUGS (4)
  1. RELENZA [Suspect]
     Indication: DRUG USE FOR UNKNOWN INDICATION
     Dosage: 10MG PER DAY
     Route: 055
     Dates: start: 20090119
  2. PREDONINE [Concomitant]
     Route: 065
  3. MEDICON [Concomitant]
     Route: 048
  4. MUCOSOLVAN [Concomitant]
     Route: 048

REACTIONS (1)
  - ASTHMA [None]
